FAERS Safety Report 5713629-5 (Version None)
Quarter: 2008Q2

REPORT INFORMATION
  Report Type: 
  Country: None (occurrence: None)
  Receive Date: 20080422
  Receipt Date: 20080415
  Transmission Date: 20081010
  Serious: Yes (Hospitalization)
  Sender: FDA-Public Use
  Company Number: US-MERCK-0804USA03267

PATIENT
  Age: 61 Year
  Sex: Female

DRUGS (3)
  1. HYZAAR [Suspect]
     Route: 048
     Dates: start: 20080326
  2. ATENOLOL [Concomitant]
     Route: 065
  3. VYTORIN [Suspect]
     Route: 048

REACTIONS (2)
  - ADVERSE EVENT [None]
  - NERVOUSNESS [None]
